FAERS Safety Report 22210826 (Version 1)
Quarter: 2023Q2

REPORT INFORMATION
  Report Type: Spontaneous
  Country: FR (occurrence: None)
  Receive Date: 20230414
  Receipt Date: 20230414
  Transmission Date: 20230722
  Serious: Yes (Hospitalization)
  Sender: FDA-Public Use
  Company Number: None

PATIENT
  Age: 35 Year
  Sex: Male
  Weight: 70 kg

DRUGS (6)
  1. BACTRIM [Suspect]
     Active Substance: SULFAMETHOXAZOLE\TRIMETHOPRIM
     Indication: Osteitis
     Route: 048
     Dates: start: 20230308, end: 20230323
  2. CLINDAMYCIN [Suspect]
     Active Substance: CLINDAMYCIN
     Indication: Osteitis
     Route: 048
     Dates: start: 20230303, end: 20230323
  3. ESCARGOT [Suspect]
     Active Substance: ESCARGOT
     Indication: Influenza like illness
     Route: 065
     Dates: start: 20230321, end: 20230323
  4. TAMIFLU [Suspect]
     Active Substance: OSELTAMIVIR PHOSPHATE
     Indication: Influenza like illness
     Route: 048
     Dates: start: 20230321, end: 20230323
  5. VOGALENE [Suspect]
     Active Substance: METOPIMAZINE
     Indication: Influenza like illness
     Route: 048
     Dates: start: 20230321, end: 20230323
  6. ACETAMINOPHEN [Suspect]
     Active Substance: ACETAMINOPHEN
     Indication: Influenza like illness
     Route: 048
     Dates: start: 20230321, end: 20230323

REACTIONS (6)
  - Thrombocytopenia [Recovering/Resolving]
  - Hepatic cytolysis [Recovering/Resolving]
  - Hyponatraemia [Recovered/Resolved]
  - Leukopenia [Recovering/Resolving]
  - Lymphopenia [Not Recovered/Not Resolved]
  - Hyperkalaemia [Recovered/Resolved]

NARRATIVE: CASE EVENT DATE: 20230323
